FAERS Safety Report 18391253 (Version 1)
Quarter: 2020Q4

REPORT INFORMATION
  Report Type: Spontaneous
  Country: US (occurrence: US)
  Receive Date: 20201016
  Receipt Date: 20201016
  Transmission Date: 20210114
  Serious: No
  Sender: FDA-Public Use
  Company Number: US-BAYER-2020-222992

PATIENT
  Sex: Male

DRUGS (3)
  1. ASCORBIC ACID. [Concomitant]
     Active Substance: ASCORBIC ACID
  2. MIRALAX [Suspect]
     Active Substance: POLYETHYLENE GLYCOL 3350
     Route: 048
  3. FIBER [Concomitant]
     Active Substance: PSYLLIUM HUSK

REACTIONS (1)
  - Wrong technique in product usage process [Unknown]
